FAERS Safety Report 6175166-6 (Version None)
Quarter: 2009Q2

REPORT INFORMATION
  Report Type: 
  Country: None (occurrence: None)
  Receive Date: 20090430
  Receipt Date: 20090115
  Transmission Date: 20091009
  Serious: No
  Sender: FDA-Public Use
  Company Number: US-ASTRAZENECA-2009UW01325

PATIENT
  Age: 58 Year
  Sex: Female
  Weight: 67.1 kg

DRUGS (2)
  1. NEXIUM [Suspect]
     Indication: SINUSITIS
     Route: 048
     Dates: start: 20090114
  2. VERAMYST [Suspect]
     Indication: SINUSITIS

REACTIONS (2)
  - FEELING HOT [None]
  - URTICARIA [None]
